FAERS Safety Report 24695785 (Version 1)
Quarter: 2024Q4

REPORT INFORMATION
  Report Type: 
  Country: AU (occurrence: AU)
  Receive Date: 20241204
  Receipt Date: 20241204
  Transmission Date: 20250114
  Serious: Yes (Other)
  Sender: CELLTRION
  Company Number: AU-CELLTRION INC.-2024AU029957

PATIENT

DRUGS (11)
  1. INFLIXIMAB [Suspect]
     Active Substance: INFLIXIMAB
     Indication: Product used for unknown indication
  2. AZATHIOPRINE [Suspect]
     Active Substance: AZATHIOPRINE
     Indication: Product used for unknown indication
  3. INFLECTRA [Concomitant]
     Active Substance: INFLIXIMAB-DYYB
  4. CLOTRIMAZOLE\HYDROCORTISONE [Concomitant]
     Active Substance: CLOTRIMAZOLE\HYDROCORTISONE
  5. MESALAMINE [Concomitant]
     Active Substance: MESALAMINE
     Dosage: UNK
  6. SULFAMETHOXAZOLE\TRIMETHOPRIM [Concomitant]
     Active Substance: SULFAMETHOXAZOLE\TRIMETHOPRIM
  7. FOLIC ACID [Concomitant]
     Active Substance: FOLIC ACID
  8. KETOCONAZOLE [Concomitant]
     Active Substance: KETOCONAZOLE
  9. MESALAMINE [Concomitant]
     Active Substance: MESALAMINE
  10. METHOTREXATE [Concomitant]
     Active Substance: METHOTREXATE
  11. PREDNISOLONE [Concomitant]
     Active Substance: PREDNISOLONE

REACTIONS (7)
  - Cytopenia [Unknown]
  - Haematochezia [Unknown]
  - Proctitis [Unknown]
  - Drug intolerance [Unknown]
  - Abdominal discomfort [Unknown]
  - Abdominal distension [Unknown]
  - Condition aggravated [Unknown]
